FAERS Safety Report 9396062 (Version 3)
Quarter: 2013Q3

REPORT INFORMATION
  Report Type: Report from Study
  Country: US (occurrence: US)
  Receive Date: 20130711
  Receipt Date: 20130917
  Transmission Date: 20140515
  Serious: Yes (Other)
  Sender: FDA-Public Use
  Company Number: US-VERTEX PHARMACEUTICALS INC-2013-007865

PATIENT
  Age: 60 Year
  Sex: Male
  Weight: 98.87 kg

DRUGS (8)
  1. VX-950 (TELAPREVIR) [Suspect]
     Indication: HEPATITIS C
     Dosage: 750 MG, TID
     Route: 048
     Dates: start: 20130620, end: 20130815
  2. RIBAVIRIN [Suspect]
     Indication: HEPATITIS C
     Dosage: 600 MG, BID
     Dates: start: 20130620, end: 20130722
  3. RIBAVIRIN [Suspect]
     Dosage: 400 MG, BID
     Dates: start: 20130723, end: 20130819
  4. RIBAVIRIN [Suspect]
     Dosage: 400 MG, BID
     Dates: start: 20130903
  5. PEGASYS [Suspect]
     Indication: HEPATITIS C
     Dosage: UNK
     Dates: start: 20130620, end: 20130815
  6. PEGASYS [Suspect]
     Dosage: 180 ?G, QW
  7. NORCO [Concomitant]
     Indication: BACK PAIN
     Dosage: UNK, PRN
  8. CIALIS [Concomitant]

REACTIONS (26)
  - Dermatitis [Recovered/Resolved]
  - Skin exfoliation [Not Recovered/Not Resolved]
  - Irritability [Not Recovered/Not Resolved]
  - Anxiety [Recovered/Resolved]
  - Constipation [Unknown]
  - Liver function test abnormal [Not Recovered/Not Resolved]
  - Hypersomnia [Not Recovered/Not Resolved]
  - Myalgia [Not Recovered/Not Resolved]
  - Arthralgia [Not Recovered/Not Resolved]
  - Oropharyngeal pain [Recovered/Resolved]
  - Abdominal pain upper [Not Recovered/Not Resolved]
  - Weight decreased [Unknown]
  - Dry eye [Unknown]
  - Pyrexia [Not Recovered/Not Resolved]
  - Wound secretion [Unknown]
  - Decreased appetite [Recovered/Resolved]
  - Ageusia [Unknown]
  - Hypoaesthesia [Not Recovered/Not Resolved]
  - Cellulitis [Recovered/Resolved]
  - Paraesthesia [Not Recovered/Not Resolved]
  - Chills [Not Recovered/Not Resolved]
  - Cough [Not Recovered/Not Resolved]
  - Fatigue [Not Recovered/Not Resolved]
  - Asthenia [Not Recovered/Not Resolved]
  - Diarrhoea [Not Recovered/Not Resolved]
  - Anaemia [Recovered/Resolved]
